FAERS Safety Report 7657200-7 (Version None)
Quarter: 2011Q3

REPORT INFORMATION
  Report Type: 
  Country: None (occurrence: None)
  Receive Date: 20110804
  Receipt Date: 20110801
  Transmission Date: 20111222
  Serious: Yes (Hospitalization, Disabling)
  Sender: FDA-Public Use
  Company Number: BR-ABBOTT-11P-020-0843197-00

PATIENT
  Age: 72 Year
  Sex: Female
  Weight: 110 kg

DRUGS (6)
  1. DEPAKENE [Suspect]
     Indication: CONFUSIONAL STATE
     Route: 048
     Dates: start: 20110729, end: 20110731
  2. HALOPERIDOL [Concomitant]
     Indication: PRODUCT USED FOR UNKNOWN INDICATION
     Route: 048
  3. INSULIN [Concomitant]
     Indication: DIABETES MELLITUS
     Dosage: 20 IU IN MORNING AND 4 IU AT NIGHT
     Route: 058
  4. DIAZEPAM [Concomitant]
     Indication: DEPRESSION
     Route: 048
  5. NORTRIPTYLINE HCL [Concomitant]
     Indication: DEPRESSION
     Route: 048
  6. CAPTOPRIL [Concomitant]
     Indication: HYPERTENSION
     Route: 048

REACTIONS (7)
  - SOMNOLENCE [None]
  - TONGUE DISORDER [None]
  - CONFUSIONAL STATE [None]
  - SECRETION DISCHARGE [None]
  - EYELID FUNCTION DISORDER [None]
  - BLOOD GLUCOSE DECREASED [None]
  - SPEECH DISORDER [None]
